FAERS Safety Report 5974936-4 (Version None)
Quarter: 2008Q4

REPORT INFORMATION
  Report Type: 
  Country: None (occurrence: None)
  Receive Date: 20081202
  Receipt Date: 20081120
  Transmission Date: 20090506
  Serious: Yes (Hospitalization)
  Sender: FDA-Public Use
  Company Number: FR-RANBAXY-2008RR-19308

PATIENT
  Sex: Male

DRUGS (4)
  1. ZIDOVUDINE [Suspect]
     Indication: HIV TEST POSITIVE
     Route: 064
  2. ZIDOVUDINE [Suspect]
  3. ZIDOVUDINE [Suspect]
     Route: 042
  4. AZIDO LIQUID 50MG/5ML [Suspect]
     Indication: ACQUIRED IMMUNODEFICIENCY SYNDROME
     Dosage: UNK

REACTIONS (1)
  - ACUTE LYMPHOCYTIC LEUKAEMIA [None]
